FAERS Safety Report 16361509 (Version 8)
Quarter: 2022Q2

REPORT INFORMATION
  Report Type: Spontaneous
  Country: US (occurrence: US)
  Receive Date: 20190528
  Receipt Date: 20220502
  Transmission Date: 20220721
  Serious: No
  Sender: FDA-Public Use
  Company Number: US-PFIZER INC-2016342694

PATIENT
  Age: 68 Year
  Sex: Female
  Weight: 75 kg

DRUGS (24)
  1. LYRICA [Suspect]
     Active Substance: PREGABALIN
     Indication: Trigeminal neuralgia
     Dosage: 150 MG, 3X/DAY
  2. LYRICA [Suspect]
     Active Substance: PREGABALIN
     Dosage: 200 MG, 3X/DAY
     Route: 048
     Dates: start: 2016
  3. LYRICA [Suspect]
     Active Substance: PREGABALIN
     Dosage: 200 MG, 3X/DAY
     Route: 048
     Dates: start: 20190117, end: 2019
  4. LYRICA [Suspect]
     Active Substance: PREGABALIN
     Dosage: 200 MG, UNK
     Route: 048
     Dates: start: 2019, end: 2019
  5. LYRICA [Suspect]
     Active Substance: PREGABALIN
     Dosage: 200 MG, 3X/DAY
     Route: 048
     Dates: start: 20191021
  6. BACLOFEN [Concomitant]
     Active Substance: BACLOFEN
     Indication: Trigeminal neuralgia
     Dosage: 15 MG, 3X/DAY
  7. BACLOFEN [Concomitant]
     Active Substance: BACLOFEN
     Dosage: 10 MG, UNK (1-1-2 THREE TIMES DAILY)
  8. BACLOFEN [Concomitant]
     Active Substance: BACLOFEN
     Dosage: UNK
     Dates: start: 2016
  9. TRAMADOL HCL [Concomitant]
     Active Substance: TRAMADOL HYDROCHLORIDE
     Dosage: 50 MG, AS NEEDED (AS NEEDED EVERY FOUR HOURS)
     Dates: start: 2016
  10. LORATADINE [Concomitant]
     Active Substance: LORATADINE
     Indication: Hypersensitivity
     Dosage: 10 MG, 1X/DAY (ONCE DAILY)
     Route: 048
     Dates: start: 2016
  11. TYLENOL [Concomitant]
     Active Substance: ACETAMINOPHEN
     Dosage: 500 MG, AS NEEDED
     Dates: start: 2017
  12. NEURONTIN [Concomitant]
     Active Substance: GABAPENTIN
     Dosage: 300 MG, 3X/DAY
     Dates: start: 2014, end: 2016
  13. NEURONTIN [Concomitant]
     Active Substance: GABAPENTIN
     Dosage: 600 MG, UNK
     Route: 048
  14. BIOTIN [Concomitant]
     Active Substance: BIOTIN
     Dosage: UNK
     Dates: start: 2016
  15. SODIUM CHLORIDE [Concomitant]
     Active Substance: SODIUM CHLORIDE
     Dosage: UNK
     Dates: start: 2000
  16. OCUVITE [Concomitant]
     Active Substance: VITAMINS
     Dosage: UNK
     Dates: start: 2014
  17. FISH OIL\OMEGA-3 FATTY ACIDS [Concomitant]
     Active Substance: FISH OIL\OMEGA-3 FATTY ACIDS
     Dosage: UNK
     Dates: start: 2014
  18. PREVIDENT [Concomitant]
     Active Substance: SODIUM FLUORIDE
     Dosage: UNK
     Dates: start: 2000
  19. GABAPENTIN [Concomitant]
     Active Substance: GABAPENTIN
     Dosage: 300 MG, 3X/DAY
     Dates: start: 2014, end: 2016
  20. GABAPENTIN [Concomitant]
     Active Substance: GABAPENTIN
     Dosage: 400 MG, UNK
     Route: 048
  21. MONTELUKAST SODIUM [Concomitant]
     Active Substance: MONTELUKAST SODIUM
     Dosage: 10 MG, 1X/DAY (ONCE DAILY)
     Dates: start: 2018, end: 2019
  22. REFRESH CLASSIC [Concomitant]
     Active Substance: POLYVINYL ALCOHOL\POVIDONE
     Dosage: UNK
     Dates: start: 2017, end: 2017
  23. ZYRTEC [Concomitant]
     Active Substance: CETIRIZINE HYDROCHLORIDE
     Dosage: 10 MG, 1X/DAY (QD)
     Dates: start: 2017, end: 2017
  24. TEGRETOL [Concomitant]
     Active Substance: CARBAMAZEPINE
     Dosage: 200 MG, UNK
     Route: 048
     Dates: start: 2015, end: 2016

REACTIONS (4)
  - Alopecia [Recovered/Resolved]
  - Speech disorder [Unknown]
  - Pain [Unknown]
  - Aphonia [Unknown]

NARRATIVE: CASE EVENT DATE: 20190101
